FAERS Safety Report 24858594 (Version 1)
Quarter: 2025Q1

REPORT INFORMATION
  Report Type: Report from Study
  Country: US (occurrence: US)
  Receive Date: 20250118
  Receipt Date: 20250118
  Transmission Date: 20250409
  Serious: Yes (Other)
  Sender: ABBVIE
  Company Number: US-ABBVIE-6087705

PATIENT
  Age: 72 Year
  Sex: Male

DRUGS (1)
  1. RINVOQ [Suspect]
     Active Substance: UPADACITINIB
     Indication: Dermatitis atopic
     Route: 048
     Dates: start: 20221221

REACTIONS (8)
  - Skin lesion [Unknown]
  - Protein urine present [Unknown]
  - Urinary tract infection [Unknown]
  - Varicocele [Unknown]
  - Blood urine present [Unknown]
  - Infection [Unknown]
  - Skin papilloma [Unknown]
  - Mass [Unknown]

NARRATIVE: CASE EVENT DATE: 20241201
